FAERS Safety Report 9145501 (Version 1)
Quarter: 2013Q1

REPORT INFORMATION
  Report Type: Spontaneous
  Country: US (occurrence: None)
  Receive Date: 20130214
  Receipt Date: 20130214
  Transmission Date: 20140127
  Serious: Yes (Death)
  Sender: FDA-Public Use
  Company Number: 2013020061

PATIENT
  Age: 53 None
  Sex: Male

DRUGS (3)
  1. CARISOPRODOL (CARISOPRODOL) [Suspect]
     Indication: COMPLETED SUICIDE
  2. BENZODIAZEPINE [Suspect]
     Indication: COMPLETED SUICIDE
  3. LIDOCAINE (LIDOCAINE) [Suspect]
     Indication: COMPLETED SUICIDE

REACTIONS (3)
  - Completed suicide [None]
  - Cardiac arrest [None]
  - Respiratory arrest [None]
